FAERS Safety Report 9482119 (Version 3)
Quarter: 2013Q3

REPORT INFORMATION
  Report Type: Report from Study
  Country: FR (occurrence: FR)
  Receive Date: 20130828
  Receipt Date: 20130830
  Transmission Date: 20140515
  Serious: Yes (Death)
  Sender: FDA-Public Use
  Company Number: FR-BAYER-2013-099404

PATIENT
  Age: 68 Year
  Sex: Male
  Weight: 60 kg

DRUGS (6)
  1. PLACEBO [Suspect]
     Indication: SOFT TISSUE CANCER
     Dosage: UNK
     Dates: start: 20130619
  2. REGORAFENIB [Suspect]
     Indication: SOFT TISSUE CANCER
     Dosage: UNK
     Dates: start: 20130722
  3. PARACETAMOL [Concomitant]
     Indication: PAIN
  4. NAPROSYNE [Concomitant]
     Indication: PAIN
  5. SKENAN [Concomitant]
     Indication: PAIN
     Dosage: 1 DF BID
  6. CELIPROLOL [Concomitant]
     Indication: HYPERTENSION
     Dosage: 1 DF QD

REACTIONS (1)
  - Diarrhoea [Fatal]
